FAERS Safety Report 4279205-9 (Version None)
Quarter: 2004Q1

REPORT INFORMATION
  Report Type: 
  Country: None (occurrence: None)
  Receive Date: 20040123
  Receipt Date: 20040110
  Transmission Date: 20041129
  Serious: Yes (Other)
  Sender: FDA-Public Use
  Company Number: 2004001907

PATIENT
  Age: 86 Year
  Sex: Female
  Weight: 76.2043 kg

DRUGS (6)
  1. NEURONTIN [Suspect]
     Indication: PAIN IN EXTREMITY
     Dosage: 300 MG (100, TID)
  2. LOSARTAN POTASSIUM (LOSARTAN POTASSIUM) [Concomitant]
  3. PANTOPRAZOLE (PANTOPRAZOLE) [Concomitant]
  4. HYDROCHLOROTHIAZIDE [Concomitant]
  5. METOPROLOL SUCCINATE (METOPROLOL SYCCINATE) [Concomitant]
  6. DOCUSATE SODIUM (DOCUSATE SODIUM) [Concomitant]

REACTIONS (10)
  - BURNING SENSATION [None]
  - COUGH [None]
  - DYSPHAGIA [None]
  - FEELING ABNORMAL [None]
  - HEADACHE [None]
  - MEDICATION ERROR [None]
  - PHARYNGOLARYNGEAL PAIN [None]
  - SENSATION OF PRESSURE [None]
  - THROAT TIGHTNESS [None]
  - TINNITUS [None]
